FAERS Safety Report 21554109 (Version 6)
Quarter: 2022Q4

REPORT INFORMATION
  Report Type: Spontaneous
  Country: GB (occurrence: GB)
  Receive Date: 20221104
  Receipt Date: 20221213
  Transmission Date: 20230113
  Serious: Yes (Other)
  Sender: FDA-Public Use
  Company Number: GB-MYLANLABS-2022M1120358

PATIENT
  Age: 26 Year
  Sex: Male
  Weight: 98 kg

DRUGS (3)
  1. CLOZARIL [Suspect]
     Active Substance: CLOZAPINE
     Indication: Schizophrenia
     Dosage: 125 MILLIGRAM, BID
     Route: 048
     Dates: start: 20220928, end: 20221029
  2. CLOZARIL [Suspect]
     Active Substance: CLOZAPINE
     Dosage: UNK
     Route: 048
     Dates: start: 20221107
  3. RISPERIDONE [Concomitant]
     Active Substance: RISPERIDONE
     Indication: Schizophrenia
     Dosage: 6 MILLIGRAM
     Route: 048
     Dates: start: 20221013, end: 20221021

REACTIONS (9)
  - Pneumonia [Recovered/Resolved]
  - Malaise [Unknown]
  - Neutrophil count increased [Recovered/Resolved]
  - White blood cell count increased [Recovered/Resolved]
  - Differential white blood cell count abnormal [Recovered/Resolved]
  - Respiratory tract infection [Recovered/Resolved]
  - Lower respiratory tract infection [Unknown]
  - Pyrexia [Unknown]
  - Eosinophilia [Unknown]

NARRATIVE: CASE EVENT DATE: 20221026
